FAERS Safety Report 6476471-6 (Version None)
Quarter: 2009Q4

REPORT INFORMATION
  Report Type: 
  Country: None (occurrence: None)
  Receive Date: 20091202
  Receipt Date: 20091116
  Transmission Date: 20100525
  Serious: Yes (Life-Threatening)
  Sender: FDA-Public Use
  Company Number: DSA_42040_2009

PATIENT
  Age: 59 Year
  Sex: Male

DRUGS (6)
  1. ENALAPRIL MALEATE AND HYDROCHLOROTHIAZIDE [Suspect]
     Indication: DRUG USE FOR UNKNOWN INDICATION
     Dosage: (DOSE UNSPECIFIED ONCE DAILY ORAL)
     Route: 048
  2. BRUFEN /00109201/ (BRUFEN-IBUPROFEN) (NOT SPECIFIED) [Suspect]
     Indication: DRUG USE FOR UNKNOWN INDICATION
     Dosage: (800 MG PRN ORAL)
     Route: 048
  3. METFORMIN HCL [Suspect]
     Indication: DRUG USE FOR UNKNOWN INDICATION
     Dosage: (3400 MG FREQUENCY UNSPECIFIED ORAL)
     Route: 048
  4. PARALGIN FORTE /00221201/ [Concomitant]
  5. AMARYL [Concomitant]
  6. SIMVASTATIN [Concomitant]

REACTIONS (8)
  - ABDOMINAL PAIN [None]
  - ACUTE RESPIRATORY FAILURE [None]
  - HAEMODIALYSIS [None]
  - HYPERVENTILATION [None]
  - LACTIC ACIDOSIS [None]
  - NAUSEA [None]
  - RENAL FAILURE ACUTE [None]
  - SHOCK [None]
